FAERS Safety Report 22140288 (Version 1)
Quarter: 2023Q1

REPORT INFORMATION
  Report Type: Spontaneous
  Country: US (occurrence: None)
  Receive Date: 20230324
  Receipt Date: 20230324
  Transmission Date: 20230418
  Serious: Yes (Disabling)
  Sender: FDA-Public Use
  Company Number: None

PATIENT
  Age: 27 Year
  Sex: Male
  Weight: 56.25 kg

DRUGS (1)
  1. HYDROCHLOROTHIAZIDE [Suspect]
     Active Substance: HYDROCHLOROTHIAZIDE
     Indication: Meniere^s disease
     Dosage: OTHER QUANTITY : 1 CAPSULE(S);?FREQUENCY : DAILY;?
     Route: 048
     Dates: start: 20191010, end: 20201230

REACTIONS (8)
  - Muscle strain [None]
  - Physical disability [None]
  - Weight decreased [None]
  - Pain [None]
  - Gait disturbance [None]
  - Pain in extremity [None]
  - Muscular weakness [None]
  - Muscle strain [None]

NARRATIVE: CASE EVENT DATE: 20200401
